FAERS Safety Report 6086321-8 (Version None)
Quarter: 2009Q1

REPORT INFORMATION
  Report Type: 
  Country: None (occurrence: None)
  Receive Date: 20090220
  Receipt Date: 20090216
  Transmission Date: 20090719
  Serious: Yes (Other)
  Sender: FDA-Public Use
  Company Number: US-ROXANE LABORATORIES, INC.-2009-RO-00153RO

PATIENT
  Age: 69 Year
  Sex: Male

DRUGS (3)
  1. FLECAINIDE ACETATE [Suspect]
     Indication: TACHYCARDIA
     Dosage: 100MG
     Route: 048
  2. MUPIROCIN [Concomitant]
     Indication: DRUG ERUPTION
  3. CLOBETASOL PROPIONATE [Concomitant]
     Indication: DRUG ERUPTION

REACTIONS (1)
  - DRUG ERUPTION [None]
